FAERS Safety Report 4619739-8 (Version None)
Quarter: 2005Q1

REPORT INFORMATION
  Report Type: 
  Country: None (occurrence: None)
  Receive Date: 20050325
  Receipt Date: 20050315
  Transmission Date: 20050727
  Serious: Yes (Hospitalization, Other)
  Sender: FDA-Public Use
  Company Number: US-MERCK-0503USA02744

PATIENT
  Age: 72 Year
  Sex: Male

DRUGS (3)
  1. TRUSOPT [Suspect]
     Indication: INTRAOCULAR PRESSURE TEST
     Route: 047
  2. LISIPRIL [Concomitant]
     Route: 065
  3. TIMOPTIC [Concomitant]
     Route: 065

REACTIONS (4)
  - HYPERKALAEMIA [None]
  - METABOLIC ACIDOSIS [None]
  - RENAL FAILURE [None]
  - RESPIRATORY DISTRESS [None]
